FAERS Safety Report 5568312-6 (Version None)
Quarter: 2007Q4

REPORT INFORMATION
  Report Type: 
  Country: None (occurrence: None)
  Receive Date: 20071220
  Receipt Date: 20071210
  Transmission Date: 20080405
  Serious: Yes (Other)
  Sender: FDA-Public Use
  Company Number: TR-KINGPHARMUSA00001-K200701597

PATIENT

DRUGS (3)
  1. SEPTRA [Suspect]
     Indication: PROPHYLAXIS
     Dosage: TIW FOR TWO YEARS
  2. MERCAPTOPURINE [Concomitant]
  3. METHOTREXATE [Concomitant]
     Dosage: UNK, QW

REACTIONS (4)
  - BLISTER [None]
  - ERYTHEMA [None]
  - LINEAR IGA DISEASE [None]
  - PRURITUS [None]
